FAERS Safety Report 7307343-2 (Version None)
Quarter: 2011Q1

REPORT INFORMATION
  Report Type: 
  Country: None (occurrence: None)
  Receive Date: 20110223
  Receipt Date: 20110215
  Transmission Date: 20110831
  Serious: Yes (Other)
  Sender: FDA-Public Use
  Company Number: US-PFIZER INC-2010118180

PATIENT
  Sex: Female
  Weight: 77 kg

DRUGS (2)
  1. ESTRING [Suspect]
     Indication: HORMONE REPLACEMENT THERAPY
     Dosage: 2 MG, EVERY 90 DAYS
     Route: 067
     Dates: start: 20100501, end: 20100501
  2. ESTRING [Suspect]
     Indication: ATROPHIC VULVOVAGINITIS

REACTIONS (1)
  - DIPLOPIA [None]
